FAERS Safety Report 11557362 (Version 1)
Quarter: 2015Q3

REPORT INFORMATION
  Report Type: Spontaneous
  Country: US (occurrence: US)
  Receive Date: 20150916
  Receipt Date: 20150916
  Transmission Date: 20151125
  Serious: No
  Sender: FDA-Public Use
  Company Number: US-ELI_LILLY_AND_COMPANY-US200807002763

PATIENT

DRUGS (1)
  1. FORTEO [Suspect]
     Active Substance: TERIPARATIDE
     Dates: start: 20071210, end: 200802

REACTIONS (7)
  - Joint crepitation [Recovered/Resolved]
  - Influenza like illness [Recovered/Resolved]
  - Presyncope [Recovered/Resolved]
  - Alopecia [Recovered/Resolved]
  - Pain in jaw [Recovered/Resolved]
  - Palpitations [Recovered/Resolved]
  - Asthenia [Recovered/Resolved]

NARRATIVE: CASE EVENT DATE: 200801
